FAERS Safety Report 7870186-5 (Version None)
Quarter: 2011Q4

REPORT INFORMATION
  Report Type: 
  Country: None (occurrence: None)
  Receive Date: 20111028
  Receipt Date: 20111028
  Transmission Date: 20120403
  Serious: Yes (Life-Threatening, Hospitalization)
  Sender: FDA-Public Use
  Company Number: None

PATIENT
  Age: 56 Year
  Sex: Female
  Weight: 116.5 kg

DRUGS (3)
  1. AMPICILLIN AND SULBACTAM [Suspect]
     Indication: URINARY TRACT INFECTION
     Dosage: 3 GM, OTHER, IV
     Route: 042
     Dates: start: 20110523, end: 20110523
  2. LAMOTRIGINE [Suspect]
     Indication: VASCULAR OPERATION
     Dosage: 100 MG, EVERY DAY, PO
     Route: 048
     Dates: start: 20110331, end: 20110602
  3. LAMOTRIGINE [Suspect]
     Indication: BIPOLAR DISORDER
     Dosage: 100 MG, EVERY DAY, PO
     Route: 048
     Dates: start: 20110331, end: 20110602

REACTIONS (8)
  - PYREXIA [None]
  - RASH MORBILLIFORM [None]
  - PAROTITIS [None]
  - PRURITUS [None]
  - ERYTHEMA MULTIFORME [None]
  - LYMPHADENOPATHY [None]
  - LOCAL SWELLING [None]
  - URTICARIA [None]
